FAERS Safety Report 12191265 (Version 1)
Quarter: 2016Q1

REPORT INFORMATION
  Report Type: Spontaneous
  Country: IL (occurrence: IL)
  Receive Date: 20160318
  Receipt Date: 20160318
  Transmission Date: 20160526
  Serious: Yes (Death)
  Sender: FDA-Public Use
  Company Number: IL-EISAI MEDICAL RESEARCH-EC-2016-015341

PATIENT
  Age: 60 Year
  Sex: Female

DRUGS (1)
  1. HALAVEN [Suspect]
     Active Substance: ERIBULIN MESYLATE
     Indication: UTERINE LEIOMYOSARCOMA
     Dosage: UNKNOWN
     Route: 041
     Dates: start: 20160207, end: 20160309

REACTIONS (2)
  - Death [Fatal]
  - Product use issue [Fatal]

NARRATIVE: CASE EVENT DATE: 20160316
